FAERS Safety Report 11175529 (Version 1)
Quarter: 2015Q2

REPORT INFORMATION
  Report Type: Spontaneous
  Country: ES (occurrence: ES)
  Receive Date: 20150609
  Receipt Date: 20150609
  Transmission Date: 20150821
  Serious: Yes (Other)
  Sender: FDA-Public Use
  Company Number: ES-ASTRAZENECA-2015SE55425

PATIENT
  Age: 72 Year
  Sex: Male

DRUGS (6)
  1. LISINOPRIL. [Concomitant]
     Active Substance: LISINOPRIL
     Dates: end: 20141027
  2. ATENOLOL. [Concomitant]
     Active Substance: ATENOLOL
     Dosage: LATENCY: 49 DAYS; ALTER 50 MG TABLETS EFG, 60 TABLETS; 25 MG DAILY
     Dates: start: 20140830
  3. ATORVASTATIN [Concomitant]
     Active Substance: ATORVASTATIN
  4. ALIPZA [Concomitant]
     Active Substance: PITAVASTATIN
     Dates: end: 20141027
  5. BRILIQUE [Suspect]
     Active Substance: TICAGRELOR
     Indication: ACUTE CORONARY SYNDROME
     Dosage: LATENCY: 59 DAYS; 90 MG, EVERY 12 HOURS, 56 TABLETS
     Route: 048
     Dates: start: 20140820, end: 20141106
  6. ASA [Concomitant]
     Active Substance: ASPIRIN

REACTIONS (3)
  - Drug-induced liver injury [Unknown]
  - Hypertransaminasaemia [Recovered/Resolved]
  - Renal failure [Recovered/Resolved]

NARRATIVE: CASE EVENT DATE: 20141017
